FAERS Safety Report 5747705-8 (Version None)
Quarter: 2008Q2

REPORT INFORMATION
  Report Type: 
  Country: None (occurrence: None)
  Receive Date: 20080523
  Receipt Date: 20080514
  Transmission Date: 20081010
  Serious: Yes (Death)
  Sender: FDA-Public Use
  Company Number: FR-ROCHE-564742

PATIENT
  Sex: Male

DRUGS (1)
  1. INVIRASE [Suspect]
     Route: 065

REACTIONS (2)
  - HEPATIC FAILURE [None]
  - SEPTIC SHOCK [None]
